FAERS Safety Report 4693695-9 (Version None)
Quarter: 2005Q2

REPORT INFORMATION
  Report Type: 
  Country: None (occurrence: None)
  Receive Date: 20050617
  Receipt Date: 20050609
  Transmission Date: 20051028
  Serious: Yes (Death, Congenital Anomaly)
  Sender: FDA-Public Use
  Company Number: FR-ABBOTT-05P-056-0302842-00

PATIENT
  Sex: Female
  Weight: 2.98 kg

DRUGS (4)
  1. DEPAKENE [Suspect]
     Indication: DRUG EXPOSURE DURING PREGNANCY
  2. CLOBAZAM [Suspect]
     Indication: DRUG EXPOSURE DURING PREGNANCY
  3. LEVETIRACETAM [Suspect]
     Indication: DRUG EXPOSURE DURING PREGNANCY
  4. FOLIC ACID [Suspect]

REACTIONS (7)
  - AMYOTROPHY [None]
  - ANORECTAL AGENESIS [None]
  - CEREBRAL VENTRICLE DILATATION [None]
  - MENINGOMYELOCELE [None]
  - PARAPARESIS [None]
  - TALIPES [None]
  - TOE DEFORMITY [None]
